FAERS Safety Report 22125337 (Version 1)
Quarter: 2023Q1

REPORT INFORMATION
  Report Type: Spontaneous
  Country: CA (occurrence: CA)
  Receive Date: 20230322
  Receipt Date: 20230322
  Transmission Date: 20230417
  Serious: Yes (Other)
  Sender: FDA-Public Use
  Company Number: CA-BAYER-2023A036043

PATIENT
  Age: 69 Year
  Sex: Male

DRUGS (7)
  1. XOFIGO [Suspect]
     Active Substance: RADIUM RA-223 DICHLORIDE
     Indication: Prostate cancer
     Dosage: UNK
  2. XOFIGO [Suspect]
     Active Substance: RADIUM RA-223 DICHLORIDE
     Indication: Prostate cancer
     Dosage: UNK
  3. XOFIGO [Suspect]
     Active Substance: RADIUM RA-223 DICHLORIDE
     Indication: Prostate cancer
     Dosage: UNK3.41 MBQ
     Dates: start: 20230201
  4. DEXAMETHASONE [Concomitant]
     Active Substance: DEXAMETHASONE
     Dosage: UNK
  5. DILAUDID [Concomitant]
     Active Substance: HYDROMORPHONE HYDROCHLORIDE
     Dosage: UNK
  6. HYDROMORPHONE [Concomitant]
     Active Substance: HYDROMORPHONE
     Dosage: UNK
  7. CABAZITAXEL [Concomitant]
     Active Substance: CABAZITAXEL
     Dosage: UNK

REACTIONS (9)
  - Prostate cancer [None]
  - Haemoglobin decreased [None]
  - Abdominal discomfort [None]
  - Muscular weakness [None]
  - Physical deconditioning [None]
  - Fatigue [None]
  - Pain in extremity [None]
  - Weight decreased [None]
  - Prostatic specific antigen increased [None]

NARRATIVE: CASE EVENT DATE: 20230201
